FAERS Safety Report 5453442-X (Version None)
Quarter: 2007Q3

REPORT INFORMATION
  Report Type: 
  Country: None (occurrence: None)
  Receive Date: 20070913
  Receipt Date: 20070910
  Transmission Date: 20080115
  Serious: Yes (Hospitalization)
  Sender: FDA-Public Use
  Company Number: E2020-01604-SPO-US

PATIENT
  Age: 90 Year
  Sex: Female

DRUGS (7)
  1. ARICEPT [Suspect]
     Indication: DEMENTIA ALZHEIMER'S TYPE
     Dosage: 10 MG, 1 IN 1 D, ORAL; YEARS AGO
     Route: 048
     Dates: end: 20070801
  2. LORAZEPAM [Concomitant]
  3. ASPIRIN [Concomitant]
  4. ROZEREM [Concomitant]
  5. MIRTAZAPINE [Concomitant]
  6. SEROQUEL [Concomitant]
  7. HALDOL [Concomitant]

REACTIONS (3)
  - ACTIVITIES OF DAILY LIVING IMPAIRED [None]
  - FALL [None]
  - HEAD INJURY [None]
